FAERS Safety Report 13692547 (Version 2)
Quarter: 2017Q3

REPORT INFORMATION
  Report Type: Spontaneous
  Country: US (occurrence: US)
  Receive Date: 20170627
  Receipt Date: 20170707
  Transmission Date: 20171127
  Serious: No
  Sender: FDA-Public Use
  Company Number: US-PFIZER INC-2017271211

PATIENT
  Sex: Female

DRUGS (1)
  1. XELJANZ XR [Suspect]
     Active Substance: TOFACITINIB CITRATE
     Dosage: 11 MG, DAILY
     Dates: start: 201607, end: 201612

REACTIONS (11)
  - Tenderness [Unknown]
  - Peripheral swelling [Unknown]
  - Muscle tightness [Unknown]
  - Joint swelling [Unknown]
  - Raynaud^s phenomenon [Unknown]
  - Arthralgia [Unknown]
  - Musculoskeletal stiffness [Unknown]
  - Dry mouth [Unknown]
  - Joint range of motion decreased [Unknown]
  - Myalgia [Unknown]
  - Feeling abnormal [Unknown]
